FAERS Safety Report 5922418-8 (Version None)
Quarter: 2008Q3

REPORT INFORMATION
  Report Type: 
  Country: None (occurrence: None)
  Receive Date: 20080909
  Receipt Date: 20080701
  Transmission Date: 20090109
  Serious: Yes (Hospitalization)
  Sender: FDA-Public Use
  Company Number: 163-20785-08051218 (0)

PATIENT
  Age: 61 Year
  Sex: Male

DRUGS (3)
  1. THALOMID [Suspect]
     Indication: MULTIPLE MYELOMA
     Dosage: 100 MG, DAILY, ORAL ; 150 MG, DAILY, ORAL
     Route: 048
     Dates: start: 20061221, end: 20070501
  2. THALOMID [Suspect]
     Indication: MULTIPLE MYELOMA
     Dosage: 100 MG, DAILY, ORAL ; 150 MG, DAILY, ORAL
     Route: 048
     Dates: start: 20070531, end: 20070901
  3. DEXAMETHASONE TAB [Concomitant]

REACTIONS (3)
  - CATHETER RELATED INFECTION [None]
  - CONDITION AGGRAVATED [None]
  - SEPSIS [None]
